FAERS Safety Report 21002704 (Version 1)
Quarter: 2022Q2

REPORT INFORMATION
  Report Type: Spontaneous
  Country: US (occurrence: US)
  Receive Date: 20220624
  Receipt Date: 20220624
  Transmission Date: 20220721
  Serious: No
  Sender: FDA-Public Use
  Company Number: US-BioHaven Pharmaceuticals-2022BHV001454

PATIENT
  Age: 39 Year
  Sex: Female

DRUGS (2)
  1. NURTEC ODT [Suspect]
     Active Substance: RIMEGEPANT SULFATE
     Indication: Migraine
     Dosage: 1 TABLET?INITIALLY AS NEEDED FOR ACUTE MIGRAINE ATTACKS. WAS SWITCHED TO PREVENTIVE EVERY OTHER DAY
     Route: 048
  2. NURTEC ODT [Suspect]
     Active Substance: RIMEGEPANT SULFATE
     Indication: Migraine prophylaxis
     Dosage: 1 TABLET?INITIALLY AS NEEDED FOR ACUTE MIGRAINE ATTACKS. WAS SWITCHED TO PREVENTIVE EVERY OTHER DAY
     Route: 048
     Dates: end: 202204

REACTIONS (2)
  - Drug ineffective [Unknown]
  - Therapeutic product effect variable [Unknown]
